FAERS Safety Report 12088553 (Version 1)
Quarter: 2016Q1

REPORT INFORMATION
  Report Type: Spontaneous
  Country: US (occurrence: None)
  Receive Date: 20160216
  Receipt Date: 20160216
  Transmission Date: 20160526
  Serious: Yes (Life-Threatening, Hospitalization)
  Sender: FDA-Public Use
  Company Number: None

PATIENT
  Age: 77 Year
  Sex: Male
  Weight: 74.84 kg

DRUGS (14)
  1. NITROGLYCERIN. [Concomitant]
     Active Substance: NITROGLYCERIN
  2. FLONASE (FLUTICASONE) [Concomitant]
  3. PROSCAR [Concomitant]
     Active Substance: FINASTERIDE
  4. ELIQUIS [Suspect]
     Active Substance: APIXABAN
     Indication: ATRIAL FIBRILLATION
     Dosage: TAKEN BY MOUTH
     Dates: start: 20150512, end: 20150728
  5. FISH OIL [Concomitant]
     Active Substance: FISH OIL
  6. VITAMIN E, C, D [Concomitant]
  7. ELIQUIS [Suspect]
     Active Substance: APIXABAN
     Indication: CEREBROVASCULAR ACCIDENT PROPHYLAXIS
     Dosage: TAKEN BY MOUTH
     Dates: start: 20150512, end: 20150728
  8. LIPITOR [Concomitant]
     Active Substance: ATORVASTATIN CALCIUM
  9. ASPIRIN. [Concomitant]
     Active Substance: ASPIRIN
  10. AMIODARONE (CORDARONE) [Concomitant]
  11. METOPROLOL (LOPRESSOR) [Concomitant]
  12. COQ 10 [Concomitant]
     Active Substance: UBIDECARENONE
  13. REMERON [Concomitant]
     Active Substance: MIRTAZAPINE
  14. PRADAXA (REMERON) [Concomitant]

REACTIONS (9)
  - Intra-abdominal haemorrhage [None]
  - Pneumothorax [None]
  - Cognitive disorder [None]
  - Splenic rupture [None]
  - Myocardial infarction [None]
  - Atrial fibrillation [None]
  - Urinary retention [None]
  - Volume blood decreased [None]
  - Faecaloma [None]

NARRATIVE: CASE EVENT DATE: 20150728
